FAERS Safety Report 9576746 (Version 1)
Quarter: 2013Q4

REPORT INFORMATION
  Report Type: Spontaneous
  Country: US (occurrence: US)
  Receive Date: 20131001
  Receipt Date: 20131001
  Transmission Date: 20140711
  Serious: No
  Sender: FDA-Public Use
  Company Number: US-AMGEN-USASP2013004659

PATIENT
  Age: 59 Year
  Sex: Female

DRUGS (4)
  1. ENBREL [Suspect]
     Indication: PRODUCT USED FOR UNKNOWN INDICATION
     Dosage: 50 MG, QWK
     Route: 058
  2. VICODIN [Concomitant]
     Dosage: 5-300 MG
  3. DICLOFENAC [Concomitant]
     Dosage: 50 MG, UNK
  4. CALCIUM D                          /00944201/ [Concomitant]
     Dosage: UNK

REACTIONS (2)
  - Bone pain [Unknown]
  - Injection site erythema [Unknown]
